FAERS Safety Report 25654070 (Version 1)
Quarter: 2025Q3

REPORT INFORMATION
  Report Type: Report from Study
  Country: US (occurrence: US)
  Receive Date: 20250807
  Receipt Date: 20250807
  Transmission Date: 20251020
  Serious: Yes (Hospitalization)
  Sender: MYLAN
  Company Number: US-MYLANLABS-2025M1065532

PATIENT
  Age: 54 Year
  Sex: Male

DRUGS (12)
  1. AMIODARONE [Suspect]
     Active Substance: AMIODARONE
     Indication: Product used for unknown indication
  2. AMIODARONE [Suspect]
     Active Substance: AMIODARONE
     Route: 048
  3. AMIODARONE [Suspect]
     Active Substance: AMIODARONE
     Route: 048
  4. AMIODARONE [Suspect]
     Active Substance: AMIODARONE
  5. SUMATRIPTAN [Suspect]
     Active Substance: SUMATRIPTAN
     Indication: Product used for unknown indication
  6. SUMATRIPTAN [Suspect]
     Active Substance: SUMATRIPTAN
     Route: 048
  7. SUMATRIPTAN [Suspect]
     Active Substance: SUMATRIPTAN
     Route: 048
  8. SUMATRIPTAN [Suspect]
     Active Substance: SUMATRIPTAN
  9. BENZONATATE [Suspect]
     Active Substance: BENZONATATE
     Indication: Product used for unknown indication
  10. BENZONATATE [Suspect]
     Active Substance: BENZONATATE
     Route: 048
  11. BENZONATATE [Suspect]
     Active Substance: BENZONATATE
     Route: 048
  12. BENZONATATE [Suspect]
     Active Substance: BENZONATATE

REACTIONS (1)
  - Intentional product use issue [Unknown]
